FAERS Safety Report 8065575-2 (Version None)
Quarter: 2012Q1

REPORT INFORMATION
  Report Type: 
  Country: None (occurrence: None)
  Receive Date: 20120124
  Receipt Date: 20120117
  Transmission Date: 20120608
  Serious: Yes (Hospitalization)
  Sender: FDA-Public Use
  Company Number: US-CELGENEUS-163-21880-12011685

PATIENT
  Sex: Female

DRUGS (1)
  1. REVLIMID [Suspect]
     Indication: MYELODYSPLASTIC SYNDROME
     Dosage: 5 MILLIGRAM
     Route: 048
     Dates: start: 20111229, end: 20120104

REACTIONS (6)
  - URINE COLOUR ABNORMAL [None]
  - PLATELET COUNT DECREASED [None]
  - JOINT SWELLING [None]
  - PYREXIA [None]
  - CONTUSION [None]
  - OEDEMA PERIPHERAL [None]
